FAERS Safety Report 5663447-1 (Version None)
Quarter: 2008Q1

REPORT INFORMATION
  Report Type: 
  Country: None (occurrence: None)
  Receive Date: 20080307
  Receipt Date: 20080222
  Transmission Date: 20080703
  Serious: Yes (Other)
  Sender: FDA-Public Use
  Company Number: JPI-P-003107

PATIENT
  Age: 49 Year
  Sex: Female

DRUGS (6)
  1. XYREM [Suspect]
     Indication: FIBROMYALGIA
     Dosage: SEE IMAGE
     Route: 048
     Dates: start: 20070917, end: 20080101
  2. XYREM [Suspect]
     Indication: FIBROMYALGIA
     Dosage: SEE IMAGE
     Route: 048
     Dates: start: 20080101, end: 20080201
  3. XYREM [Suspect]
     Indication: FIBROMYALGIA
     Dosage: SEE IMAGE
     Route: 048
     Dates: start: 20080201
  4. BUPROPION HYDROCHLORIDE [Concomitant]
  5. CALMING PILL (ALL OTHER THERAPEUTIC PRODUCTS) [Concomitant]
  6. OXYCODONE HCL [Concomitant]

REACTIONS (7)
  - ABNORMAL BEHAVIOUR [None]
  - AGGRESSION [None]
  - AMNESIA [None]
  - COGNITIVE DISORDER [None]
  - CONDITION AGGRAVATED [None]
  - DEPRESSION [None]
  - SELF-INJURIOUS IDEATION [None]
